FAERS Safety Report 10363708 (Version 1)
Quarter: 2014Q3

REPORT INFORMATION
  Report Type: Spontaneous
  Country: US (occurrence: US)
  Receive Date: 20140805
  Receipt Date: 20140805
  Transmission Date: 20150326
  Serious: Yes (Other)
  Sender: FDA-Public Use
  Company Number: US-BAXTER-2014BAX046476

PATIENT
  Age: 7 Year
  Sex: Male

DRUGS (5)
  1. TERBUTALINE [Suspect]
     Active Substance: TERBUTALINE
     Indication: ASTHMA
     Route: 065
  2. ALBUTEROL. [Suspect]
     Active Substance: ALBUTEROL
     Indication: ASTHMA
     Route: 065
  3. EPINEPHRINE. [Suspect]
     Active Substance: EPINEPHRINE
     Indication: ASTHMA
     Route: 058
  4. FORANE [Suspect]
     Active Substance: ISOFLURANE
     Indication: ASTHMA
  5. FORANE [Suspect]
     Active Substance: ISOFLURANE
     Indication: OFF LABEL USE
     Route: 055

REACTIONS (1)
  - Pupil fixed [Recovered/Resolved]
